FAERS Safety Report 13458238 (Version 4)
Quarter: 2018Q3

REPORT INFORMATION
  Report Type: Spontaneous
  Country: SE (occurrence: SE)
  Receive Date: 20170419
  Receipt Date: 20180911
  Transmission Date: 20181010
  Serious: Yes (Death)
  Sender: FDA-Public Use
  Company Number: SE-PFIZER INC-2017165605

PATIENT
  Age: 26 Year
  Sex: Male

DRUGS (6)
  1. BUPRENORPHINE. [Interacting]
     Active Substance: BUPRENORPHINE
     Dosage: UNK
  2. PREGABALIN. [Suspect]
     Active Substance: PREGABALIN
     Dosage: UNK
  3. MIRTAZAPINE. [Interacting]
     Active Substance: MIRTAZAPINE
     Dosage: UNK
  4. CLONAZEPAM. [Interacting]
     Active Substance: CLONAZEPAM
     Dosage: UNK
  5. TETRAHYDROCANNABINOL [Interacting]
     Active Substance: DRONABINOL
     Dosage: UNK
  6. FENTANYL. [Interacting]
     Active Substance: FENTANYL
     Dosage: UNK (1.00 NG/G BLOOD)

REACTIONS (3)
  - Toxicity to various agents [Fatal]
  - Drug interaction [Fatal]
  - Accidental overdose [Fatal]
